FAERS Safety Report 9339220 (Version 1)
Quarter: 2013Q2

REPORT INFORMATION
  Report Type: Spontaneous
  Country: US (occurrence: None)
  Receive Date: 20130606
  Receipt Date: 20130606
  Transmission Date: 20140414
  Serious: Yes (Life-Threatening, Hospitalization)
  Sender: FDA-Public Use
  Company Number: None

PATIENT
  Age: 77 Year
  Sex: Female
  Weight: 73.4 kg

DRUGS (1)
  1. PRADAXA 150 MG BOEHRINGER INGELHEIM [Suspect]
     Indication: ATRIAL FIBRILLATION
     Route: 048

REACTIONS (6)
  - Gastrointestinal haemorrhage [None]
  - Anaemia [None]
  - Melaena [None]
  - Renal failure acute [None]
  - Cardiac disorder [None]
  - Hyperkalaemia [None]
